FAERS Safety Report 7539873-2 (Version None)
Quarter: 2011Q2

REPORT INFORMATION
  Report Type: 
  Country: None (occurrence: None)
  Receive Date: 20110610
  Receipt Date: 20110601
  Transmission Date: 20111010
  Serious: Yes (Hospitalization)
  Sender: FDA-Public Use
  Company Number: JP-ELI_LILLY_AND_COMPANY-JP200911007049

PATIENT
  Sex: Female
  Weight: 54.2 kg

DRUGS (8)
  1. CORTRIL [Concomitant]
     Indication: SECONDARY ADRENOCORTICAL INSUFFICIENCY
     Dosage: 10 MG, DAILY (1/D)
     Route: 048
  2. SOMATROPIN RDNA [Suspect]
     Dosage: 0.3 MG, DAILY (1/D)
     Route: 058
     Dates: start: 20080925, end: 20090429
  3. DESMOPRESSIN ACETATE [Concomitant]
     Indication: DIABETES INSIPIDUS
     Dosage: 715 UG, DAILY (1/D)
     Route: 045
  4. PREMARIN [Concomitant]
     Indication: SECONDARY HYPOGONADISM
     Dosage: 0.625 MG, DAILY (1/D)
     Route: 048
  5. SOMATROPIN RDNA [Suspect]
     Dosage: 0.2 MG, DAILY (1/D)
     Route: 058
     Dates: start: 20080911, end: 20080924
  6. LEVOTHYROXINE SODIUM [Concomitant]
     Indication: SECONDARY HYPOTHYROIDISM
     Dosage: 75 UG, DAILY (1/D)
     Route: 048
  7. SOMATROPIN RDNA [Suspect]
     Indication: GROWTH HORMONE DEFICIENCY
     Dosage: 0.1 MG, QD
     Route: 058
     Dates: start: 20080826, end: 20080910
  8. PROVERA [Concomitant]
     Indication: SECONDARY HYPOGONADISM
     Dosage: 5 MG, DAILY (1/D)
     Route: 048

REACTIONS (1)
  - GERM CELL CANCER [None]
